FAERS Safety Report 7562305-5 (Version None)
Quarter: 2011Q2

REPORT INFORMATION
  Report Type: 
  Country: None (occurrence: None)
  Receive Date: 20110614
  Receipt Date: 20110526
  Transmission Date: 20111010
  Serious: Yes (Other)
  Sender: FDA-Public Use
  Company Number: AUR-APL-2011-02846

PATIENT
  Age: 83 Year
  Sex: Male

DRUGS (19)
  1. LISINOPRIL [Suspect]
     Indication: PRODUCT USED FOR UNKNOWN INDICATION
     Dosage: 5 MG, EVERY MORNING, ORAL
     Route: 048
     Dates: start: 20071205, end: 20080527
  2. TIOTROPIUM BROMIDE [Concomitant]
  3. MYSOLINE [Concomitant]
  4. TAMSULOSIN HCL [Concomitant]
  5. NABUMETONE [Concomitant]
  6. PULMICORT [Suspect]
     Indication: PRODUCT USED FOR UNKNOWN INDICATION
     Dosage: 0.5 MG, 2 ML, 1 TWO TIMES A DAY, RESPIRATORY (INHALATION)
     Route: 055
     Dates: start: 20021125, end: 20100413
  7. DIOVAN [Concomitant]
  8. NITROGLYCERIN [Concomitant]
  9. ATENOLOL [Suspect]
     Indication: PRODUCT USED FOR UNKNOWN INDICATION
     Dosage: 50 MG, 1 D, ORAL
     Route: 048
     Dates: start: 20081021, end: 20081218
  10. LOMOTIL [Concomitant]
  11. LASIX [Concomitant]
  12. XOPENEX [Concomitant]
  13. SURFAK (DOCUSATE CALCIUM) [Concomitant]
  14. SIMVASTATIN [Concomitant]
  15. NEXIUM [Suspect]
     Indication: PRODUCT USED FOR UNKNOWN INDICATION
     Dosage: 40 MG, EVERY MORNING, ORAL
     Route: 048
     Dates: start: 20110311
  16. NEXIUM [Suspect]
     Indication: PRODUCT USED FOR UNKNOWN INDICATION
     Dosage: 40 MG, EVERY MORNING, ORAL
     Route: 048
     Dates: start: 20081008, end: 20090205
  17. CITALOPRAM HYDROBROMIDE [Concomitant]
  18. TORSEMIDE [Concomitant]
  19. HYDROCODONE [Concomitant]

REACTIONS (3)
  - RENAL FAILURE CHRONIC [None]
  - COUGH [None]
  - COR PULMONALE [None]
